FAERS Safety Report 9266060 (Version 3)
Quarter: 2013Q3

REPORT INFORMATION
  Report Type: Spontaneous
  Country: FR (occurrence: FR)
  Receive Date: 20130501
  Receipt Date: 20130813
  Transmission Date: 20140515
  Serious: Yes (Hospitalization, Other)
  Sender: FDA-Public Use
  Company Number: FR-AMGEN-FRASP2013030372

PATIENT
  Age: 53 Year
  Sex: Male

DRUGS (1)
  1. ENBREL [Suspect]
     Indication: PSORIASIS
     Dosage: 50 MG, 2X/WEEK
     Route: 058
     Dates: start: 20130125, end: 20130215

REACTIONS (6)
  - Eczema [Unknown]
  - Subcutaneous abscess [Unknown]
  - Abdominal abscess [Unknown]
  - Lymphadenopathy [Unknown]
  - Psoriasis [Unknown]
  - Staphylococcal infection [Recovered/Resolved]
